FAERS Safety Report 8417179-7 (Version None)
Quarter: 2012Q2

REPORT INFORMATION
  Report Type: 
  Country: None (occurrence: None)
  Receive Date: 20120606
  Receipt Date: 20120530
  Transmission Date: 20120825
  Serious: Yes (Other)
  Sender: FDA-Public Use
  Company Number: JP-PFIZER INC-2012113806

PATIENT
  Age: 80 Year
  Sex: Male

DRUGS (1)
  1. LYRICA [Suspect]
     Indication: PAIN IN EXTREMITY
     Dosage: 75 MG, ALTERNATE DAY
     Route: 048
     Dates: start: 20120404

REACTIONS (3)
  - EPIGLOTTITIS [None]
  - PHARYNGEAL EROSION [None]
  - FOREIGN BODY [None]
